FAERS Safety Report 9459808 (Version 2)
Quarter: 2013Q3

REPORT INFORMATION
  Report Type: Spontaneous
  Country: FR (occurrence: FR)
  Receive Date: 20130815
  Receipt Date: 20130821
  Transmission Date: 20140515
  Serious: Yes (Life-Threatening, Hospitalization)
  Sender: FDA-Public Use
  Company Number: FR-PFIZER INC-2013235044

PATIENT
  Age: 37 Year
  Sex: Female

DRUGS (5)
  1. DOSTINEX [Suspect]
     Indication: SUPPRESSED LACTATION
     Dosage: UNK, SINGLE
     Route: 048
     Dates: start: 20130618, end: 20130618
  2. NALADOR [Suspect]
     Indication: THIRD STAGE POSTPARTUM HAEMORRHAGE
     Dosage: 500 UG WITHIN 1 HOUR + 500 UG WITHIN 5 HOURS
     Route: 041
     Dates: start: 20130617, end: 20130617
  3. SYNTOCINON [Concomitant]
     Dosage: 50 IU, UNK
  4. PERFALGAN [Concomitant]
     Dosage: UNK
  5. ACTISKENAN [Concomitant]
     Dosage: UNK

REACTIONS (3)
  - Cardiomyopathy [Recovering/Resolving]
  - Acute pulmonary oedema [Recovered/Resolved]
  - Peripartum cardiomyopathy [Recovering/Resolving]
